FAERS Safety Report 20830121 (Version 1)
Quarter: 2022Q2

REPORT INFORMATION
  Report Type: Spontaneous
  Country: US (occurrence: US)
  Receive Date: 20220514
  Receipt Date: 20220514
  Transmission Date: 20220721
  Serious: Yes (Other)
  Sender: FDA-Public Use
  Company Number: US-TEVA-2022-US-2037142

PATIENT
  Age: 48 Year
  Sex: Male

DRUGS (9)
  1. CAPECITABINE [Suspect]
     Active Substance: CAPECITABINE
     Indication: Metastases to peritoneum
     Dosage: ADJUVANT SYSTEMIC THERAPY; RECEIVED TWO CYCLES
     Route: 065
  2. FLUOROURACIL [Suspect]
     Active Substance: FLUOROURACIL
     Indication: Metastases to peritoneum
     Dosage: ADJUVANT SYSTEMIC THERAPY; RECEIVED FIVE CYCLES
     Route: 050
  3. LEUCOVORIN [Suspect]
     Active Substance: LEUCOVORIN
     Indication: Metastases to peritoneum
     Dosage: ADJUVANT SYSTEMIC THERAPY; RECEIVED FIVE CYCLES
     Route: 065
  4. IRINOTECAN [Suspect]
     Active Substance: IRINOTECAN
     Indication: Metastases to peritoneum
     Route: 065
  5. OXALIPLATIN [Suspect]
     Active Substance: OXALIPLATIN
     Indication: Metastases to peritoneum
     Dosage: ADJUVANT SYSTEMIC THERAPY; RECEIVED FIVE CYCLES
     Route: 050
  6. OXALIPLATIN [Suspect]
     Active Substance: OXALIPLATIN
     Dosage: RECEIVED 12 CYCLES
     Route: 065
  7. MITOMYCIN C [Suspect]
     Active Substance: MITOMYCIN
     Indication: Metastases to peritoneum
     Route: 065
  8. BEVACIZUMAB [Suspect]
     Active Substance: BEVACIZUMAB
     Indication: Metastases to peritoneum
     Route: 065
  9. PALBOCICLIB [Suspect]
     Active Substance: PALBOCICLIB
     Indication: Metastases to peritoneum
     Dosage: 125 MILLIGRAM DAILY; FOR 21 DAYS, FOLLOWED BY 7 DAYS OFF, COMPRISING A A 28-DAY CYCLE
     Route: 048

REACTIONS (5)
  - Neuropathy peripheral [Unknown]
  - Atrial fibrillation [Unknown]
  - Abdominal pain [Unknown]
  - Abdominal distension [Unknown]
  - Drug ineffective [Unknown]
